FAERS Safety Report 23371360 (Version 2)
Quarter: 2024Q1

REPORT INFORMATION
  Report Type: Report from Study
  Country: CN (occurrence: CN)
  Receive Date: 20240105
  Receipt Date: 20240117
  Transmission Date: 20240410
  Serious: No
  Sender: FDA-Public Use
  Company Number: CN-PFIZER INC-PV202300210423

PATIENT
  Age: 89 Year
  Sex: Female

DRUGS (20)
  1. NIRMATRELVIR\RITONAVIR [Suspect]
     Active Substance: NIRMATRELVIR\RITONAVIR
     Dosage: [NIRMATRELVIR 300 MG]/[RITONAVIR 100 MG], 2X/DAY
     Dates: start: 20220504, end: 20220509
  2. NIRMATRELVIR\RITONAVIR [Suspect]
     Active Substance: NIRMATRELVIR\RITONAVIR
     Dosage: [NIRMATRELVIR 300 MG]/[RITONAVIR 100 MG], 2X/DAY
     Dates: start: 20220510, end: 20220514
  3. AMLODIPINE BESYLATE [Concomitant]
     Active Substance: AMLODIPINE BESYLATE
     Indication: Decompression sickness
     Dosage: UNK
     Route: 048
     Dates: start: 20220504, end: 20220517
  4. VITAMIN C [Concomitant]
     Active Substance: ASCORBIC ACID
     Indication: Vitamin supplementation
     Dosage: UNK
     Route: 048
     Dates: start: 20220504, end: 20220517
  5. HERBALS\MENTHOL [Concomitant]
     Active Substance: HERBALS\MENTHOL
     Indication: Antiviral treatment
     Dosage: UNK
     Route: 048
     Dates: start: 20220504, end: 20220517
  6. INTERFERON ALFA-2B [Concomitant]
     Active Substance: INTERFERON ALFA-2B
     Indication: Antiviral treatment
     Dosage: RECOMBINANT HUMAN INTERFERON A2B SPRAY, INHALATION
     Dates: start: 20220504, end: 20220517
  7. GLIMEPIRIDE [Concomitant]
     Active Substance: GLIMEPIRIDE
     Indication: Blood glucose decreased
     Dosage: UNK
     Route: 048
     Dates: start: 20220504, end: 20220517
  8. ENOXAPARIN SODIUM [Concomitant]
     Active Substance: ENOXAPARIN SODIUM
     Indication: Anticoagulant therapy
     Dosage: UNK
     Route: 058
     Dates: start: 20220504, end: 20220517
  9. CLOPIDOGREL BISULFATE [Concomitant]
     Active Substance: CLOPIDOGREL BISULFATE
     Indication: Antiplatelet therapy
     Dosage: UNK
     Route: 048
     Dates: start: 20220504, end: 20220517
  10. CLOPIDOGREL BISULFATE [Concomitant]
     Active Substance: CLOPIDOGREL BISULFATE
     Dosage: UNK
     Route: 048
     Dates: start: 20220504
  11. ATORVASTATIN CALCIUM [Concomitant]
     Active Substance: ATORVASTATIN CALCIUM
     Indication: Lipids decreased
     Dosage: UNK
     Route: 048
     Dates: start: 20220504, end: 20220517
  12. ISOSORBIDE MONONITRATE [Concomitant]
     Active Substance: ISOSORBIDE MONONITRATE
     Indication: Tooth disorder
     Dosage: SUSTAINED-RELEASE TABLETS
     Route: 048
     Dates: start: 20220504, end: 20220517
  13. ESTAZOLAM [Concomitant]
     Active Substance: ESTAZOLAM
     Indication: Insomnia
     Dosage: UNK
     Route: 048
     Dates: start: 20220504, end: 20220517
  14. ESTAZOLAM [Concomitant]
     Active Substance: ESTAZOLAM
     Dosage: UNK
     Route: 048
     Dates: start: 20220504
  15. HERBALS [Concomitant]
     Active Substance: HERBALS
     Indication: Antiviral treatment
     Dosage: UNK
     Route: 042
     Dates: start: 20220504, end: 20220510
  16. THYMALFASIN [Concomitant]
     Active Substance: THYMALFASIN
     Indication: Immunomodulatory therapy
     Dosage: UNK
     Route: 042
     Dates: start: 20220504, end: 20220510
  17. ACARBOSE [Concomitant]
     Active Substance: ACARBOSE
     Indication: Blood glucose decreased
     Dosage: UNK
     Route: 048
     Dates: start: 20220512, end: 20220517
  18. AMBROXOL HYDROCHLORIDE [Concomitant]
     Active Substance: AMBROXOL HYDROCHLORIDE
     Indication: Productive cough
     Dosage: UNK
     Route: 048
     Dates: start: 20220506, end: 20220516
  19. INSULIN HUMAN [Concomitant]
     Active Substance: INSULIN HUMAN
     Indication: Blood glucose decreased
     Dosage: UNK
     Dates: start: 20220508
  20. HERBALS [Concomitant]
     Active Substance: HERBALS
     Indication: Cardiovascular deconditioning
     Dosage: UNK
     Route: 048
     Dates: start: 20220511

REACTIONS (1)
  - Overdose [Unknown]
